FAERS Safety Report 17347341 (Version 2)
Quarter: 2020Q1

REPORT INFORMATION
  Report Type: Other
  Country: IT (occurrence: IT)
  Receive Date: 20200130
  Receipt Date: 20200217
  Transmission Date: 20200409
  Serious: Yes (Hospitalization, Other)
  Sender: FDA-Public Use
  Company Number: IT-CELLTRION INC.-2020IT017987

PATIENT

DRUGS (19)
  1. CYCLOPHOSPHAMIDE. [Concomitant]
     Active Substance: CYCLOPHOSPHAMIDE
     Dosage: 3 CYCLES
     Route: 065
     Dates: start: 20170927, end: 20191019
  2. RITUXIMAB (UNKNOWN) [Suspect]
     Active Substance: RITUXIMAB
     Dosage: UNK
     Route: 065
     Dates: start: 20190805, end: 20190908
  3. IFOSFAMIDE. [Suspect]
     Active Substance: IFOSFAMIDE
     Indication: DIFFUSE LARGE B-CELL LYMPHOMA
     Dosage: UNK
     Route: 065
     Dates: start: 20190805, end: 20190908
  4. VINCRISTINE [Concomitant]
     Active Substance: VINCRISTINE
     Dosage: 3 CYCLES
     Route: 065
     Dates: start: 20170927, end: 20191019
  5. VINCRISTINE [Concomitant]
     Active Substance: VINCRISTINE
     Indication: PRODUCT USED FOR UNKNOWN INDICATION
     Dosage: 3 CYCLES
     Route: 065
     Dates: start: 20171121, end: 20180105
  6. PREDNISONE. [Concomitant]
     Active Substance: PREDNISONE
     Indication: PRODUCT USED FOR UNKNOWN INDICATION
     Dosage: 3 CYCLES
     Route: 065
     Dates: start: 20171121, end: 20180105
  7. ETOPOSIDE. [Suspect]
     Active Substance: ETOPOSIDE
     Dosage: 2 CYCLES
     Route: 065
     Dates: start: 20190805, end: 201909
  8. CYCLOPHOSPHAMIDE. [Concomitant]
     Active Substance: CYCLOPHOSPHAMIDE
     Indication: PRODUCT USED FOR UNKNOWN INDICATION
     Dosage: 2 CYCLES
     Route: 065
     Dates: start: 20190805, end: 201909
  9. RITUXIMAB (UNKNOWN) [Suspect]
     Active Substance: RITUXIMAB
     Dosage: 3 CYCLES
     Route: 065
     Dates: start: 20171121, end: 20180105
  10. ETOPOSIDE. [Suspect]
     Active Substance: ETOPOSIDE
     Indication: DIFFUSE LARGE B-CELL LYMPHOMA
     Dosage: 3 CYCLES
     Route: 065
     Dates: start: 20171121, end: 20180105
  11. RITUXIMAB (UNKNOWN) [Suspect]
     Active Substance: RITUXIMAB
     Indication: DIFFUSE LARGE B-CELL LYMPHOMA
     Dosage: 3 CYCLES
     Route: 065
     Dates: start: 20170927, end: 20191019
  12. RITUXIMAB (UNKNOWN) [Suspect]
     Active Substance: RITUXIMAB
     Dosage: 2 CYCLES
     Route: 065
     Dates: start: 20190805, end: 201909
  13. EPIRUBICIN [Suspect]
     Active Substance: EPIRUBICIN
     Dosage: 2 CYCLES
     Route: 065
     Dates: start: 20190805, end: 201909
  14. ETOPOSIDE. [Suspect]
     Active Substance: ETOPOSIDE
     Dosage: UNK
     Route: 065
     Dates: start: 20190805, end: 20190908
  15. DOXORUBICIN [Concomitant]
     Active Substance: DOXORUBICIN
     Indication: PRODUCT USED FOR UNKNOWN INDICATION
     Dosage: 3 CYCLES
     Route: 065
     Dates: start: 20170927, end: 20191019
  16. EPIRUBICIN [Suspect]
     Active Substance: EPIRUBICIN
     Indication: DIFFUSE LARGE B-CELL LYMPHOMA
     Dosage: UNK
     Route: 065
     Dates: start: 20190805, end: 20190908
  17. IFOSFAMIDE. [Suspect]
     Active Substance: IFOSFAMIDE
     Dosage: 2 CYCLES
     Route: 065
     Dates: start: 20190805, end: 201909
  18. PREDNISONE. [Concomitant]
     Active Substance: PREDNISONE
     Dosage: 3 CYCLES
     Route: 065
     Dates: start: 20170927, end: 20191019
  19. DOXORUBICIN [Concomitant]
     Active Substance: DOXORUBICIN
     Dosage: 3 CYCLES
     Route: 065
     Dates: start: 20171121, end: 20180105

REACTIONS (4)
  - Disease recurrence [Unknown]
  - Disease progression [Unknown]
  - Gastroenteritis [Unknown]
  - Neutropenia [Unknown]
